FAERS Safety Report 19232978 (Version 2)
Quarter: 2021Q3

REPORT INFORMATION
  Report Type: Report from Study
  Country: None (occurrence: US)
  Receive Date: 20210507
  Receipt Date: 20210716
  Transmission Date: 20211014
  Serious: Yes (Hospitalization, Other)
  Sender: FDA-Public Use
  Company Number: US-ABBVIE-21K-163-3888569-00

PATIENT
  Sex: Male

DRUGS (4)
  1. HUMIRA [Suspect]
     Active Substance: ADALIMUMAB
     Route: 058
     Dates: start: 2021
  2. HUMIRA [Suspect]
     Active Substance: ADALIMUMAB
     Indication: COLITIS ULCERATIVE
     Route: 058
     Dates: start: 20210129, end: 2021
  3. BACTRIM [Suspect]
     Active Substance: SULFAMETHOXAZOLE\TRIMETHOPRIM
     Indication: PRODUCT USED FOR UNKNOWN INDICATION
     Route: 065
     Dates: start: 2021
  4. ZYRTEC [Concomitant]
     Active Substance: CETIRIZINE HYDROCHLORIDE
     Indication: PRODUCT USED FOR UNKNOWN INDICATION

REACTIONS (29)
  - Hospitalisation [Recovered/Resolved]
  - Fatigue [Not Recovered/Not Resolved]
  - Rectal abscess [Recovered/Resolved]
  - Loss of personal independence in daily activities [Unknown]
  - Vitreous detachment [Unknown]
  - Fear [Not Recovered/Not Resolved]
  - Dysphonia [Unknown]
  - Adverse food reaction [Not Recovered/Not Resolved]
  - Drug hypersensitivity [Recovered/Resolved]
  - Vitreous floaters [Unknown]
  - Faeces hard [Unknown]
  - Adverse food reaction [Unknown]
  - Paraesthesia [Not Recovered/Not Resolved]
  - Insomnia [Unknown]
  - Decreased appetite [Recovering/Resolving]
  - Diarrhoea [Unknown]
  - Rash [Recovered/Resolved]
  - Abdominal pain [Unknown]
  - Constipation [Recovering/Resolving]
  - Insomnia [Not Recovered/Not Resolved]
  - Anxiety [Not Recovered/Not Resolved]
  - Chest discomfort [Not Recovered/Not Resolved]
  - Faeces soft [Unknown]
  - Malaise [Unknown]
  - Hypoaesthesia [Not Recovered/Not Resolved]
  - Depressed mood [Not Recovered/Not Resolved]
  - Scrotal abscess [Recovered/Resolved]
  - Pyrexia [Recovered/Resolved]
  - Rectal haemorrhage [Unknown]

NARRATIVE: CASE EVENT DATE: 2021
